FAERS Safety Report 12760477 (Version 1)
Quarter: 2016Q3

REPORT INFORMATION
  Report Type: Report from Study
  Country: US (occurrence: US)
  Receive Date: 20160919
  Receipt Date: 20160919
  Transmission Date: 20161109
  Serious: Yes (Hospitalization)
  Sender: FDA-Public Use
  Company Number: US-ACTELION-A-US2016-133250

PATIENT
  Age: 70 Year
  Sex: Female

DRUGS (7)
  1. UPTRAVI [Suspect]
     Active Substance: SELEXIPAG
     Indication: PULMONARY HYPERTENSION
     Dosage: 200 MCG, BID
     Route: 048
     Dates: start: 20160302
  2. OPSUMIT [Suspect]
     Active Substance: MACITENTAN
     Indication: PULMONARY HYPERTENSION
     Dosage: 10 MG, QD
     Route: 048
     Dates: start: 20140729, end: 20160802
  3. UPTRAVI [Suspect]
     Active Substance: SELEXIPAG
     Dosage: 1000 MCG, BID
     Route: 048
     Dates: end: 20160802
  4. NORVASC [Concomitant]
     Active Substance: AMLODIPINE BESYLATE
  5. UPTRAVI [Suspect]
     Active Substance: SELEXIPAG
     Dosage: 800 MCG, BID
     Route: 048
  6. ADCIRCA [Concomitant]
     Active Substance: TADALAFIL
  7. XARELTO [Concomitant]
     Active Substance: RIVAROXABAN

REACTIONS (16)
  - Haemorrhage [Unknown]
  - Joint swelling [Unknown]
  - Transfusion [Unknown]
  - Oedema peripheral [Unknown]
  - Erythema [Unknown]
  - Dizziness [Unknown]
  - Syncope [Unknown]
  - Feeling abnormal [Unknown]
  - Ear pain [Unknown]
  - Therapy non-responder [Unknown]
  - Oedema [Unknown]
  - Headache [Unknown]
  - Dyspnoea [Unknown]
  - Abdominal discomfort [Unknown]
  - Renal disorder [Unknown]
  - Hypotension [Unknown]
